FAERS Safety Report 7547604-5 (Version None)
Quarter: 2011Q2

REPORT INFORMATION
  Report Type: 
  Country: None (occurrence: None)
  Receive Date: 20110614
  Receipt Date: 20110531
  Transmission Date: 20111010
  Serious: Yes (Hospitalization, Other)
  Sender: FDA-Public Use
  Company Number: US-CELGENEUS-163-21880-11042525

PATIENT
  Sex: Male

DRUGS (13)
  1. CALCIUM WITH VITAMIN D [Concomitant]
     Dosage: 600 MILLIGRAM
     Route: 065
  2. ZOMETA [Concomitant]
     Route: 051
  3. DEXAMETHASONE [Concomitant]
     Dosage: 20 MILLIGRAM
     Dates: start: 20110411
  4. MULTI-VITAMINS [Concomitant]
     Route: 065
  5. REVLIMID [Suspect]
     Indication: MULTIPLE MYELOMA
     Dosage: 25 MILLIGRAM
     Route: 048
     Dates: start: 20071030, end: 20110307
  6. ACYCLOVIR [Concomitant]
     Dosage: 400 MILLIGRAM
     Route: 065
  7. FOLIC ACID [Concomitant]
     Dosage: 1 MILLIGRAM
     Route: 065
  8. LISINOPRIL AND HYDROCHLOROTHIAZIDE [Concomitant]
     Dosage: 20/12.5
     Route: 065
  9. HEPARIN [Concomitant]
     Route: 065
  10. COUMADIN [Concomitant]
     Route: 065
  11. NORCO [Concomitant]
     Indication: PAIN
     Dosage: 10/325
     Route: 065
  12. REVLIMID [Suspect]
     Dosage: 25 MILLIGRAM
     Route: 048
     Dates: start: 20110320
  13. DEXAMETHASONE [Concomitant]
     Indication: MULTIPLE MYELOMA
     Dosage: 40 MILLIGRAM
     Route: 048
     Dates: start: 20080115

REACTIONS (4)
  - BONE MARROW FAILURE [None]
  - CARDIAC VALVE DISEASE [None]
  - ATRIAL FLUTTER [None]
  - CARDIAC FAILURE CONGESTIVE [None]
